FAERS Safety Report 8854780 (Version 2)
Quarter: 2012Q4

REPORT INFORMATION
  Report Type: 
  Country: US (occurrence: US)
  Receive Date: 20121023
  Receipt Date: 20121114
  Transmission Date: 20130627
  Serious: Yes (Hospitalization)
  Sender: FDA-Public Use
  Company Number: US-ROXANE LABORATORIES, INC.-2012-RO-02023RO

PATIENT
  Sex: Female

DRUGS (8)
  1. PREDNISONE [Suspect]
     Indication: IDIOPATHIC THROMBOCYTOPENIC PURPURA
     Route: 048
  2. METFORMIN [Concomitant]
  3. LORTAB [Concomitant]
  4. LISINOPRIL [Concomitant]
  5. LOVASTATIN [Concomitant]
  6. LEVOTHYROXINE [Concomitant]
  7. VITAMIN D [Concomitant]
  8. TYLENOL [Concomitant]

REACTIONS (4)
  - Hypertension [Unknown]
  - Hyperglycaemia [Unknown]
  - Drug ineffective [Unknown]
  - Product quality issue [Unknown]
